FAERS Safety Report 9010095 (Version 4)
Quarter: 2013Q4

REPORT INFORMATION
  Report Type: Spontaneous
  Country: US (occurrence: US)
  Receive Date: 20130110
  Receipt Date: 20131227
  Transmission Date: 20140711
  Serious: Yes (Hospitalization, Other)
  Sender: FDA-Public Use
  Company Number: US-009507513-1301USA002321

PATIENT
  Sex: Female
  Weight: 78.46 kg

DRUGS (5)
  1. FOSAMAX [Suspect]
     Indication: OSTEOPOROSIS
     Dosage: 70 MG, QW
     Route: 048
     Dates: start: 200308, end: 200610
  2. ALENDRONATE SODIUM [Suspect]
     Dosage: 70 MG, UNK
     Route: 048
  3. ARAVA [Concomitant]
     Indication: RHEUMATOID ARTHRITIS
     Dosage: 20 MG, QD
     Route: 048
  4. TOLECTIN [Concomitant]
     Indication: RHEUMATOID ARTHRITIS
     Dosage: 400 MG,HS
     Route: 048
  5. PREDNISONE [Concomitant]
     Indication: RHEUMATOID ARTHRITIS
     Dosage: 1 MG, UNK
     Route: 048

REACTIONS (19)
  - Knee arthroplasty [Unknown]
  - Fracture nonunion [Unknown]
  - Intramedullary rod insertion [Unknown]
  - Medical device complication [Unknown]
  - Removal of internal fixation [Unknown]
  - Biopsy bone [Unknown]
  - Transplant [Unknown]
  - Body height decreased [Unknown]
  - Low turnover osteopathy [Unknown]
  - Procedural haemorrhage [Unknown]
  - Rheumatoid lung [Unknown]
  - Anaemia [Unknown]
  - Osteopenia [Unknown]
  - Ankle deformity [Not Recovered/Not Resolved]
  - Vaginal lesion [Unknown]
  - Hyperkeratosis [Unknown]
  - Arthralgia [Not Recovered/Not Resolved]
  - Back pain [Not Recovered/Not Resolved]
  - Femur fracture [Unknown]
